FAERS Safety Report 7767556-2 (Version None)
Quarter: 2011Q3

REPORT INFORMATION
  Report Type: 
  Country: None (occurrence: None)
  Receive Date: 20110922
  Receipt Date: 20110914
  Transmission Date: 20111222
  Serious: Yes (Hospitalization)
  Sender: FDA-Public Use
  Company Number: JP-ASTELLAS-2011US001314

PATIENT
  Sex: Male

DRUGS (8)
  1. AMBISOME [Suspect]
     Indication: ASPERGILLOSIS
     Dosage: 150 MG, UID/QD
     Route: 042
     Dates: start: 20081227, end: 20081228
  2. LANSOPRAZOLE [Concomitant]
     Indication: GASTRIC ULCER
     Dosage: 30 MG, UID/QD
     Route: 042
     Dates: start: 20081201, end: 20090102
  3. MEROPENEM [Concomitant]
     Indication: PRODUCT USED FOR UNKNOWN INDICATION
     Dosage: 1 G, UID/QD
     Route: 065
     Dates: start: 20081201
  4. SULFAMETHOXAZOLE [Concomitant]
     Indication: PNEUMOCYSTIS JIROVECI PNEUMONIA
     Dosage: 2 DF, UID/QD
     Route: 048
     Dates: start: 20080101, end: 20090102
  5. PREDNISOLONE [Concomitant]
     Indication: HYPERGAMMAGLOBULINAEMIA BENIGN MONOCLONAL
     Dosage: 15 MG, UID/QD
     Route: 042
     Dates: start: 20080101, end: 20090102
  6. VANCOMYCIN [Concomitant]
     Indication: PRODUCT USED FOR UNKNOWN INDICATION
     Dosage: 1 G, UID/QD
     Route: 065
     Dates: start: 20081201
  7. AMBISOME [Suspect]
     Indication: FUNGAL INFECTION
  8. ITRACONAZOLE [Concomitant]
     Indication: ASPERGILLOSIS
     Dosage: UNK
     Route: 048
     Dates: end: 20081226

REACTIONS (1)
  - PANCYTOPENIA [None]
